FAERS Safety Report 24338033 (Version 1)
Quarter: 2024Q3

REPORT INFORMATION
  Report Type: Spontaneous
  Country: US (occurrence: US)
  Receive Date: 20240919
  Receipt Date: 20240919
  Transmission Date: 20241017
  Serious: Yes (Hospitalization, Other)
  Sender: RANBAXY
  Company Number: US-SUN PHARMACEUTICAL INDUSTRIES LTD-2024R1-468044

PATIENT
  Age: 30 Year
  Sex: Female
  Weight: 52.2 kg

DRUGS (4)
  1. LETROZOLE [Suspect]
     Active Substance: LETROZOLE
     Indication: Product used for unknown indication
     Dosage: 10 MILLIGRAM
     Route: 065
  2. GANIRELIX [Suspect]
     Active Substance: GANIRELIX
     Indication: Product used for unknown indication
     Dosage: 250 INTERNATIONAL UNIT PER GRAM
     Route: 065
  3. FOLLITROPIN ALFA [Suspect]
     Active Substance: FOLLITROPIN ALFA
     Indication: Product used for unknown indication
     Dosage: UNK
     Route: 065
  4. MENOTROPINS [Suspect]
     Active Substance: MENOTROPINS
     Indication: Product used for unknown indication
     Dosage: UNK
     Route: 065

REACTIONS (7)
  - Ovarian hyperstimulation syndrome [Unknown]
  - Otitis media [Unknown]
  - Nausea [Unknown]
  - Vomiting [Unknown]
  - Dyspnoea [Unknown]
  - Pulmonary oedema [Unknown]
  - Abdominal distension [Unknown]
